FAERS Safety Report 9627704 (Version 1)
Quarter: 2013Q4

REPORT INFORMATION
  Report Type: Not Available
  Country: US (occurrence: US)
  Receive Date: 20131016
  Receipt Date: 20131016
  Transmission Date: 20140711
  Serious: No
  Sender: FDA-Public Use
  Company Number: US-LUNDBECK-DKLU1091283

PATIENT
  Sex: Female

DRUGS (5)
  1. DEPAKOTE [Concomitant]
     Indication: PRODUCT USED FOR UNKNOWN INDICATION
  2. SABRIL (TABLET) [Suspect]
     Indication: EPILEPSY
     Route: 048
     Dates: start: 20100825
  3. SABRIL (TABLET) [Suspect]
     Indication: COMPLEX PARTIAL SEIZURES
  4. KEPPRA [Concomitant]
     Indication: PRODUCT USED FOR UNKNOWN INDICATION
  5. DILANTIN [Concomitant]
     Indication: PRODUCT USED FOR UNKNOWN INDICATION

REACTIONS (1)
  - Drug dose omission [Unknown]
